FAERS Safety Report 24239505 (Version 3)
Quarter: 2025Q1

REPORT INFORMATION
  Report Type: Spontaneous
  Country: US (occurrence: US)
  Receive Date: 20240822
  Receipt Date: 20250227
  Transmission Date: 20250409
  Serious: No
  Sender: AVADEL CNS PHARMACEUTICALS, LLC
  Company Number: US-AVADEL CNS PHARMACEUTICALS, LLC-2024AVA01092

PATIENT
  Sex: Female
  Weight: 76.644 kg

DRUGS (30)
  1. LUMRYZ [Suspect]
     Active Substance: SODIUM OXYBATE
     Indication: Narcolepsy
     Dosage: 9 G, ONCE NIGHTLY
     Dates: start: 202309, end: 2024
  2. LUMRYZ [Suspect]
     Active Substance: SODIUM OXYBATE
     Indication: Cataplexy
     Dosage: 9 G, ONCE NIGHTLY AT BEDTIME
     Dates: start: 2024
  3. GLUCOSAMINE + CHONDROITIN [CHONDROITIN SULFATE SODIUM;GLUCOSAMINE SULF [Concomitant]
  4. CALCIUM CITRATE;COLECALCIFEROL;MAGNESIUM [Concomitant]
  5. CELEBRATE MULTI-COMPLETE 45 WITH IRON VITAMIN [Concomitant]
  6. ENSTILAR [BETAMETHASONE DIPROPIONATE;CALCIPOTRIOL MONOHYDRATE] [Concomitant]
  7. SIMETHICONE (DIMETHICONE) [Concomitant]
     Active Substance: DIMETHICONE
  8. BEANO [Concomitant]
     Active Substance: ASPERGILLUS NIGER .ALPHA.-GALACTOSIDASE
  9. FAMOTIDINE [Concomitant]
     Active Substance: FAMOTIDINE
  10. LORAZEPAM [Concomitant]
     Active Substance: LORAZEPAM
  11. METHYLPHENIDATE HYDROCHLORIDE [Concomitant]
     Active Substance: METHYLPHENIDATE HYDROCHLORIDE
  12. MULTIVITAMIN WOMEN 50 PLUS [Concomitant]
  13. VITAMIN B12 [Concomitant]
     Active Substance: CYANOCOBALAMIN
  14. GAVISCON [ALUMINIUM HYDROXIDE;MAGNESIUM CARBONATE] [Concomitant]
  15. OMEGA-3 FATTY ACIDS [Concomitant]
     Active Substance: OMEGA-3 FATTY ACIDS
  16. WAKIX [Concomitant]
     Active Substance: PITOLISANT HYDROCHLORIDE
  17. ARMODAFINIL [Concomitant]
     Active Substance: ARMODAFINIL
  18. NITROMIST [Concomitant]
     Active Substance: NITROGLYCERIN
  19. WELLBUTRIN SR [Concomitant]
     Active Substance: BUPROPION HYDROCHLORIDE
  20. SUNOSI [Concomitant]
     Active Substance: SOLRIAMFETOL
  21. ONDANSETRON HYDROCHLORIDE [Concomitant]
     Active Substance: ONDANSETRON HYDROCHLORIDE
  22. VITAMIN D NOS [Concomitant]
     Active Substance: CHOLECALCIFEROL\ERGOCALCIFEROL
  23. CALCIUM [Concomitant]
     Active Substance: CALCIUM
  24. NITROGLYCERIN [Concomitant]
     Active Substance: NITROGLYCERIN
  25. DULOXETINE HYDROCHLORIDE [Concomitant]
     Active Substance: DULOXETINE HYDROCHLORIDE
  26. CLONAZEPAM [Concomitant]
     Active Substance: CLONAZEPAM
  27. NUVIGIL [Concomitant]
     Active Substance: ARMODAFINIL
  28. METHYLPHENIDATE [Concomitant]
     Active Substance: METHYLPHENIDATE
  29. BUPROPION HYDROCHLORIDE [Concomitant]
     Active Substance: BUPROPION HYDROCHLORIDE
  30. CALCIUM PLUS D3 [Concomitant]

REACTIONS (18)
  - Scratch [Recovered/Resolved]
  - Wound infection [Recovered/Resolved]
  - Tooth fracture [Recovered/Resolved]
  - Stress [Not Recovered/Not Resolved]
  - Blood iron decreased [Recovered/Resolved]
  - Sleep apnoea syndrome [Unknown]
  - Somnambulism [Recovering/Resolving]
  - Fall [Recovered/Resolved]
  - Enuresis [Recovered/Resolved]
  - Weight decreased [Not Recovered/Not Resolved]
  - Nocturia [Unknown]
  - Depression [Unknown]
  - Head injury [Unknown]
  - Contusion [Unknown]
  - Injury [Unknown]
  - Wrong technique in product usage process [Recovered/Resolved]
  - Product dose omission issue [Not Recovered/Not Resolved]
  - Alopecia [Unknown]

NARRATIVE: CASE EVENT DATE: 20230101
